FAERS Safety Report 6742355-9 (Version None)
Quarter: 2010Q2

REPORT INFORMATION
  Report Type: 
  Country: None (occurrence: None)
  Receive Date: 20100526
  Receipt Date: 20100518
  Transmission Date: 20101027
  Serious: Yes (Hospitalization)
  Sender: FDA-Public Use
  Company Number: FR-BRISTOL-MYERS SQUIBB COMPANY-15111446

PATIENT
  Age: 57 Year
  Sex: Female

DRUGS (8)
  1. HYDREA [Suspect]
     Indication: BREAST CANCER
     Route: 048
     Dates: start: 19981201, end: 20030301
  2. ETOPOSIDE [Suspect]
     Indication: BREAST CANCER
     Dosage: 6 IV CYCLES
     Route: 042
     Dates: start: 20020801, end: 20030101
  3. CYCLOPHOSPHAMIDE [Suspect]
     Indication: BREAST CANCER
     Route: 042
     Dates: start: 20020801, end: 20030101
  4. FLUOROURACIL [Suspect]
     Dates: start: 20020801, end: 20030101
  5. XAGRID [Suspect]
     Indication: MYELOFIBROSIS
     Dates: start: 20030301, end: 20080601
  6. THALIDOMIDE [Suspect]
     Indication: MYELOFIBROSIS
     Dates: start: 20081001, end: 20091101
  7. EPIRUBICIN [Suspect]
     Dates: start: 20020801, end: 20030101
  8. RADIOTHERAPY [Suspect]
     Dates: start: 20030101

REACTIONS (1)
  - ACUTE MYELOID LEUKAEMIA [None]
